FAERS Safety Report 19269878 (Version 1)
Quarter: 2021Q2

REPORT INFORMATION
  Report Type: Report from Study
  Country: US (occurrence: US)
  Receive Date: 20210518
  Receipt Date: 20210518
  Transmission Date: 20210717
  Serious: Yes (Other)
  Sender: FDA-Public Use
  Company Number: US-JNJFOC-20180330639

PATIENT
  Age: 85 Year
  Sex: Male

DRUGS (21)
  1. FUROSEMIDE. [Suspect]
     Active Substance: FUROSEMIDE
     Indication: PRODUCT USED FOR UNKNOWN INDICATION
  2. SYNTHROID [Concomitant]
     Active Substance: LEVOTHYROXINE SODIUM
  3. VITAMIN B NOS [Concomitant]
     Active Substance: VITAMIN B
  4. CALCIUM W/MAGNESIUM [Concomitant]
     Active Substance: CALCIUM\MAGNESIUM
     Dosage: 500 ? 250 MG
  5. ZINC. [Concomitant]
     Active Substance: ZINC
  6. ELIQUIS [Concomitant]
     Active Substance: APIXABAN
  7. MELATONIN [Concomitant]
     Active Substance: MELATONIN
  8. VITAMIN C [Concomitant]
     Active Substance: ASCORBIC ACID
  9. PRESERVISION AREDS [Concomitant]
     Active Substance: MINERALS\VITAMINS
  10. IMBRUVICA [Suspect]
     Active Substance: IBRUTINIB
     Indication: WALDENSTROM^S MACROGLOBULINAEMIA
     Route: 048
     Dates: start: 20180503
  11. IMODIUM [Suspect]
     Active Substance: LOPERAMIDE HYDROCHLORIDE
     Indication: DIARRHOEA
     Route: 065
  12. CALCIUM GLUCONATE. [Concomitant]
     Active Substance: CALCIUM GLUCONATE
  13. TAMSULOSIN HYDROCHLORIDE. [Concomitant]
     Active Substance: TAMSULOSIN HYDROCHLORIDE
  14. TOPROL XL [Concomitant]
     Active Substance: METOPROLOL SUCCINATE
  15. MULTIVITAMINS [Concomitant]
     Active Substance: VITAMINS
  16. SPIRONOLACTONE. [Suspect]
     Active Substance: SPIRONOLACTONE
     Indication: FLUID RETENTION
     Route: 065
  17. IRON [Concomitant]
     Active Substance: IRON
  18. VITAMIN B COMPLEX [Concomitant]
     Active Substance: CYANOCOBALAMIN\DEXPANTHENOL\NIACINAMIDE\PYRIDOXINE HYDROCHLORIDE\RIBOFLAVIN 5^-PHOSPHATE SODIUM\THIAMINE HYDROCHLORIDE\VITAMIN B COMPLEX
  19. IMBRUVICA [Suspect]
     Active Substance: IBRUTINIB
     Indication: WALDENSTROM^S MACROGLOBULINAEMIA
     Route: 048
     Dates: start: 20180308, end: 20180502
  20. MULTIVITAMINS [Concomitant]
     Active Substance: VITAMINS
  21. CARMELLOSE [Concomitant]
     Active Substance: CARBOXYMETHYLCELLULOSE

REACTIONS (15)
  - Balance disorder [Recovering/Resolving]
  - Dehydration [Unknown]
  - Herpes zoster [Unknown]
  - Dizziness [Unknown]
  - Pruritus [Unknown]
  - Fatigue [Unknown]
  - Dry mouth [Unknown]
  - Pain [Unknown]
  - Gait disturbance [Recovering/Resolving]
  - Asthenia [Unknown]
  - Fluid retention [Unknown]
  - Cardiac flutter [Unknown]
  - Constipation [Recovered/Resolved]
  - Gastrointestinal pain [Unknown]
  - Diarrhoea [Recovered/Resolved]

NARRATIVE: CASE EVENT DATE: 20180119
